FAERS Safety Report 7375208-6 (Version None)
Quarter: 2011Q1

REPORT INFORMATION
  Report Type: 
  Country: None (occurrence: None)
  Receive Date: 20110325
  Receipt Date: 20110314
  Transmission Date: 20110831
  Serious: Yes (Hospitalization, Other)
  Sender: FDA-Public Use
  Company Number: US-ELI_LILLY_AND_COMPANY-US200912002144

PATIENT
  Sex: Male

DRUGS (15)
  1. LANTUS [Concomitant]
     Dosage: UNK, EACH EVENING
  2. FORTEO [Suspect]
     Dosage: 20 UG, DAILY (1/D)
  3. CENTRUM SILVER [Concomitant]
     Dosage: UNK, DAILY (1/D)
  4. FORTEO [Suspect]
     Indication: OSTEOPOROSIS
     Dosage: 20 UG, DAILY (1/D)
     Dates: start: 20090101, end: 20090101
  5. DIGOXIN [Concomitant]
     Dosage: 0.125 MG, UNK
  6. PLAVIX [Concomitant]
     Dosage: UNK, DAILY (1/D)
  7. VITAMIN B-12 [Concomitant]
     Dosage: UNK, MONTHLY (1/M)
  8. INSULIN [Concomitant]
     Indication: DIABETES MELLITUS
  9. ZOCOR [Concomitant]
     Dosage: UNK, DAILY (1/D)
  10. SYNTHROID [Concomitant]
     Dosage: 75 MG, EACH MORNING
  11. ACIPHEX [Concomitant]
     Dosage: 20 UG, EACH MORNING
  12. ASPIRIN [Concomitant]
     Dosage: 81 MG, UNK
  13. CALCIUM WITH VITAMIN D [Concomitant]
     Dosage: 600 MG, 3/D
  14. LOVAZA [Concomitant]
     Dosage: UNK, DAILY (1/D)
  15. FORTEO [Suspect]
     Dosage: 20 UG, DAILY (1/D)
     Dates: start: 20090101

REACTIONS (6)
  - RASH [None]
  - CORONARY ARTERY OCCLUSION [None]
  - SKIN REACTION [None]
  - BLOOD GLUCOSE INCREASED [None]
  - WEIGHT DECREASED [None]
  - FLUSHING [None]
